FAERS Safety Report 10481973 (Version 2)
Quarter: 2014Q4

REPORT INFORMATION
  Report Type: Report from Study
  Country: AT (occurrence: AT)
  Receive Date: 20140929
  Receipt Date: 20141014
  Transmission Date: 20150528
  Serious: Yes (Hospitalization)
  Sender: FDA-Public Use
  Company Number: AT-US-EMD SERONO, INC.-7322143

PATIENT
  Age: 44 Year
  Sex: Female
  Weight: 70 kg

DRUGS (1)
  1. REBIF [Suspect]
     Active Substance: INTERFERON BETA-1A
     Indication: MULTIPLE SCLEROSIS
     Route: 058
     Dates: start: 201402, end: 201406

REACTIONS (9)
  - Asthenia [Unknown]
  - General physical health deterioration [Unknown]
  - Fatigue [Unknown]
  - Myocardial infarction [Recovered/Resolved]
  - Oral discomfort [Unknown]
  - Asthenia [Unknown]
  - Respiration abnormal [Unknown]
  - Peripheral swelling [Unknown]
  - Tooth disorder [Unknown]

NARRATIVE: CASE EVENT DATE: 201402
